FAERS Safety Report 7925588-5 (Version None)
Quarter: 2011Q4

REPORT INFORMATION
  Report Type: 
  Country: None (occurrence: None)
  Receive Date: 20111118
  Receipt Date: 20110408
  Transmission Date: 20120403
  Serious: No
  Sender: FDA-Public Use
  Company Number: US-AMGEN-USASP2011018888

PATIENT
  Sex: Male

DRUGS (2)
  1. METHOTREXATE [Concomitant]
     Dates: start: 20060401
  2. ENBREL [Suspect]
     Indication: ANKYLOSING SPONDYLITIS
     Dosage: 50 MG, QWK
     Dates: start: 20060401

REACTIONS (5)
  - OEDEMA PERIPHERAL [None]
  - JOINT SWELLING [None]
  - INJECTION SITE SWELLING [None]
  - PAIN IN EXTREMITY [None]
  - INJECTION SITE PAIN [None]
